FAERS Safety Report 15274128 (Version 2)
Quarter: 2018Q3

REPORT INFORMATION
  Report Type: Report from Study
  Country: DK (occurrence: DK)
  Receive Date: 20180814
  Receipt Date: 20180822
  Transmission Date: 20181010
  Serious: Yes (Death, Hospitalization)
  Sender: FDA-Public Use
  Company Number: DK-ROCHE-2161133

PATIENT
  Sex: Male
  Weight: 105.8 kg

DRUGS (6)
  1. SULPHAMETHOXAZOLE + TRIMETHOPRIM [Concomitant]
     Active Substance: SULFAMETHOXAZOLE\TRIMETHOPRIM
     Dosage: 800/160 MG
     Route: 065
     Dates: start: 20180208, end: 20180806
  2. DOMPERIDONE [Concomitant]
     Active Substance: DOMPERIDONE
     Route: 048
     Dates: start: 20180716, end: 20180730
  3. FLUDARABINE PHOSPHATE. [Suspect]
     Active Substance: FLUDARABINE PHOSPHATE
     Indication: CHRONIC LYMPHOCYTIC LEUKAEMIA
     Dosage: LAST DAILY DOSE OF FLUDARABINE PHOSPHATE 28 MG,  DATE OF LAST DOSE PRIOR TO SAE 18/JUL/2018
     Route: 042
     Dates: start: 20180212, end: 20180718
  4. CYCLOPHOSPHAMIDE. [Suspect]
     Active Substance: CYCLOPHOSPHAMIDE
     Indication: CHRONIC LYMPHOCYTIC LEUKAEMIA
     Dosage: LAST DAILY DOSE OF CYCLOPHOSPHAMIDE 281 MG,  DATE OF LAST DOSE PRIOR TO SAE 16/JUL/2018?LAST DOSE PR
     Route: 042
     Dates: start: 20180212, end: 20180716
  5. PARACETAMOL [Concomitant]
     Active Substance: ACETAMINOPHEN
     Route: 048
     Dates: start: 20180125, end: 20180806
  6. RITUXIMAB. [Suspect]
     Active Substance: RITUXIMAB
     Indication: CHRONIC LYMPHOCYTIC LEUKAEMIA
     Dosage: LAST DAILY DOSE OF RITUXIMAB 1125 MG, DATE OF LAST DOSE PRIOR TO SAE 18/JUL/2018?LAST DOSE PRIOR TO
     Route: 042
     Dates: start: 20180212

REACTIONS (2)
  - Sepsis [Fatal]
  - Febrile neutropenia [Fatal]

NARRATIVE: CASE EVENT DATE: 20180723
